FAERS Safety Report 22190721 (Version 4)
Quarter: 2023Q2

REPORT INFORMATION
  Report Type: Report from Study
  Country: CN (occurrence: CN)
  Receive Date: 20230410
  Receipt Date: 20230629
  Transmission Date: 20230722
  Serious: Yes (Hospitalization)
  Sender: FDA-Public Use
  Company Number: CN-ABBVIE-4720592

PATIENT
  Age: 19 Year
  Sex: Male
  Weight: 50 kg

DRUGS (3)
  1. HUMIRA [Suspect]
     Active Substance: ADALIMUMAB
     Indication: Crohn^s disease
     Dosage: 160 MILLIGRAM? FREQUENCY TEXT: ONCE
     Route: 058
     Dates: start: 20230307, end: 20230307
  2. HUMIRA [Suspect]
     Active Substance: ADALIMUMAB
     Dosage: 80 MILLIGRAM? FREQUENCY TEXT: ONCE
     Route: 058
     Dates: start: 20230321, end: 20230321
  3. HUMIRA [Suspect]
     Active Substance: ADALIMUMAB
     Route: 058

REACTIONS (4)
  - Anal fistula [Recovered/Resolved]
  - Anal fistula [Recovering/Resolving]
  - Anal fistula [Recovered/Resolved]
  - Malnutrition [Unknown]

NARRATIVE: CASE EVENT DATE: 20230309
